FAERS Safety Report 22074826 (Version 2)
Quarter: 2023Q1

REPORT INFORMATION
  Report Type: Spontaneous
  Country: DE (occurrence: DE)
  Receive Date: 20230308
  Receipt Date: 20230309
  Transmission Date: 20230418
  Serious: Yes (Other)
  Sender: FDA-Public Use
  Company Number: DE-002147023-NVSC2023DE048908

PATIENT

DRUGS (4)
  1. OXALIPLATIN [Suspect]
     Active Substance: OXALIPLATIN
     Indication: Gastrointestinal carcinoma
     Dosage: 85 MG/M2, CYCLIC (FOUR PREOPERATIVE CYCLES)
     Route: 065
  2. DOCETAXEL [Suspect]
     Active Substance: DOCETAXEL
     Indication: Gastrointestinal carcinoma
     Dosage: 50 MG/M2, CYCLIC (FOUR PREOPERATIVE CYCLES)
     Route: 065
  3. LEUCOVORIN CALCIUM [Suspect]
     Active Substance: LEUCOVORIN CALCIUM
     Indication: Gastrointestinal carcinoma
     Dosage: 200 MG/M2, CYCLIC (FOUR PREOPERATIVE CYCLES)
     Route: 065
  4. FLUOROURACIL [Suspect]
     Active Substance: FLUOROURACIL
     Indication: Gastrointestinal carcinoma
     Dosage: 2600 MG/M2, CYCLIC (FOUR PREOPERATIVE CYCLES)(AS A 24-H INFUSION ON DAY 1, REPEALED EVERY 2 WEEKS)
     Route: 065

REACTIONS (1)
  - Diarrhoea [Unknown]
